FAERS Safety Report 22962069 (Version 5)
Quarter: 2023Q4

REPORT INFORMATION
  Report Type: Report from Study
  Country: JP (occurrence: None)
  Receive Date: 20230920
  Receipt Date: 20231130
  Transmission Date: 20240110
  Serious: Yes (Hospitalization)
  Sender: FDA-Public Use
  Company Number: JP-ROCHE-3172774

PATIENT
  Age: 80 Year
  Sex: Female
  Weight: 48.3 kg

DRUGS (39)
  1. TIRAGOLUMAB [Suspect]
     Active Substance: TIRAGOLUMAB
     Indication: Lung squamous cell carcinoma metastatic
     Dosage: ON 01/AUG/2022, START DATE OF MOST RECENT DOSE OF TIRAGOLUMAB PRIOR TO AE?START DATE OF MOST RECENT
     Route: 042
     Dates: start: 20201203
  2. ATEZOLIZUMAB [Suspect]
     Active Substance: ATEZOLIZUMAB
     Indication: Lung squamous cell carcinoma metastatic
     Dosage: ON 01/AUG/2022, START DATE OF MOST RECENT DOSE OF ATEZOLIZUMAB PRIOR TO AE.?DOSE LAST STUDY DRUG PRI
     Route: 041
     Dates: start: 20201203
  3. LIPITOR [Concomitant]
     Active Substance: ATORVASTATIN CALCIUM
     Indication: Hyperlipidaemia
     Route: 048
  4. CALSLOT (JAPAN) [Concomitant]
     Indication: Hypertension
     Route: 048
  5. AZILSARTAN KAMEDOXOMIL [Concomitant]
     Active Substance: AZILSARTAN KAMEDOXOMIL
     Indication: Hypertension
     Route: 048
     Dates: start: 20201224, end: 20230907
  6. AZILSARTAN KAMEDOXOMIL [Concomitant]
     Active Substance: AZILSARTAN KAMEDOXOMIL
     Route: 048
     Dates: start: 20230908, end: 20230914
  7. CARVEDILOL [Concomitant]
     Active Substance: CARVEDILOL
     Indication: Hypertension
     Route: 048
     Dates: start: 20210430
  8. INFLUENZA VIRUS VACCINE [Concomitant]
     Active Substance: INFLUENZA VIRUS VACCINE
     Indication: Prophylaxis
     Route: 058
     Dates: start: 20230112, end: 20230112
  9. HEPARINOID [Concomitant]
     Indication: Dry skin
     Route: 061
     Dates: start: 20211028
  10. HEPARINOID [Concomitant]
     Indication: Dermatitis
     Route: 061
     Dates: start: 20211118
  11. HEPARINOID [Concomitant]
     Indication: Rash
     Route: 061
     Dates: start: 20220120
  12. HEPARINOID [Concomitant]
     Indication: Pruritus
     Dates: start: 20230917, end: 20230923
  13. BILASTINE [Concomitant]
     Active Substance: BILASTINE
     Indication: Dry skin
     Route: 048
     Dates: start: 20211028
  14. BILASTINE [Concomitant]
     Active Substance: BILASTINE
     Indication: Pruritus
     Route: 048
     Dates: start: 20230302, end: 20230923
  15. DIFLUPREDNATE [Concomitant]
     Active Substance: DIFLUPREDNATE
     Indication: Dermatitis
     Route: 061
     Dates: start: 20211108
  16. DIFLUPREDNATE [Concomitant]
     Active Substance: DIFLUPREDNATE
     Indication: Rash
     Route: 061
     Dates: start: 20220120
  17. DIFLUPREDNATE [Concomitant]
     Active Substance: DIFLUPREDNATE
     Route: 061
     Dates: start: 20211118
  18. SULFAMETHOXAZOLE\TRIMETHOPRIM [Concomitant]
     Active Substance: SULFAMETHOXAZOLE\TRIMETHOPRIM
     Route: 048
     Dates: start: 20220602, end: 20230927
  19. LANSOPRAZOLE [Concomitant]
     Active Substance: LANSOPRAZOLE
     Route: 048
     Dates: start: 20220602, end: 20220825
  20. PREDNISOLONE [Concomitant]
     Active Substance: PREDNISOLONE
     Indication: Immune thrombocytopenia
     Route: 048
     Dates: start: 20220721, end: 20220726
  21. PREDNISOLONE [Concomitant]
     Active Substance: PREDNISOLONE
     Route: 048
     Dates: start: 20220727, end: 20221026
  22. PREDNISOLONE [Concomitant]
     Active Substance: PREDNISOLONE
     Route: 048
     Dates: start: 20221027, end: 20221201
  23. PREDNISOLONE [Concomitant]
     Active Substance: PREDNISOLONE
     Route: 048
     Dates: start: 20221202, end: 20230112
  24. PREDNISOLONE [Concomitant]
     Active Substance: PREDNISOLONE
     Route: 048
     Dates: start: 20230113
  25. PREDNISOLONE [Concomitant]
     Active Substance: PREDNISOLONE
     Route: 048
     Dates: start: 20230728
  26. FAMOTIDINE [Concomitant]
     Active Substance: FAMOTIDINE
     Route: 048
     Dates: start: 20220825, end: 20230907
  27. FAMOTIDINE [Concomitant]
     Active Substance: FAMOTIDINE
     Route: 048
     Dates: start: 20230907
  28. COMIRNATY (TOZINAMERAN) [Concomitant]
     Active Substance: TOZINAMERAN
     Indication: COVID-19
     Route: 030
     Dates: start: 20221124, end: 20221124
  29. MEQUITAZINE [Concomitant]
     Active Substance: MEQUITAZINE
     Indication: Upper respiratory tract inflammation
     Route: 048
     Dates: start: 20221206, end: 20221231
  30. PRANOPROFEN [Concomitant]
     Active Substance: PRANOPROFEN
     Indication: Upper respiratory tract inflammation
     Route: 048
     Dates: start: 20221206, end: 20221213
  31. CALONAL [Concomitant]
     Active Substance: ACETAMINOPHEN
     Indication: Back pain
     Route: 048
     Dates: start: 20221212, end: 20221221
  32. CALONAL [Concomitant]
     Active Substance: ACETAMINOPHEN
     Route: 048
     Dates: start: 20221222, end: 20230105
  33. TRICHLORMETHIAZIDE [Concomitant]
     Active Substance: TRICHLORMETHIAZIDE
     Indication: Hypertension
     Dates: start: 20210916, end: 20230907
  34. RISEDRONATE SODIUM HEMI-PENTAHYDRATE [Concomitant]
     Active Substance: RISEDRONATE SODIUM HEMI-PENTAHYDRATE
     Indication: Osteoporosis
     Dates: start: 20230727
  35. MANIDIPINE HYDROCHLORIDE [Concomitant]
     Active Substance: MANIDIPINE HYDROCHLORIDE
     Indication: Hypertension
     Dates: start: 20230710
  36. NIPOLAZIN [Concomitant]
     Route: 048
     Dates: start: 20230831, end: 20230904
  37. MEDICON TABLETS (JAPAN) [Concomitant]
     Route: 048
     Dates: start: 20230831, end: 20230904
  38. AMPICILLIN SODIUM\SULBACTAM SODIUM [Concomitant]
     Active Substance: AMPICILLIN SODIUM\SULBACTAM SODIUM
     Dates: start: 20230920, end: 20230921
  39. LIDOCAINE [Concomitant]
     Active Substance: LIDOCAINE
     Dates: start: 20230920, end: 20230920

REACTIONS (2)
  - Hyperkalaemia [Recovered/Resolved]
  - Tubulointerstitial nephritis [Recovered/Resolved]

NARRATIVE: CASE EVENT DATE: 20220825
